FAERS Safety Report 11897742 (Version 2)
Quarter: 2016Q1

REPORT INFORMATION
  Report Type: Report from Study
  Country: FR (occurrence: FR)
  Receive Date: 20160108
  Receipt Date: 20160119
  Transmission Date: 20160526
  Serious: Yes (Other)
  Sender: FDA-Public Use
  Company Number: PHHY2015FR161165

PATIENT
  Age: 33 Year
  Sex: Male

DRUGS (1)
  1. ILARIS [Suspect]
     Active Substance: CANAKINUMAB
     Indication: MUCKLE-WELLS SYNDROME
     Dosage: UNK
     Route: 058

REACTIONS (2)
  - Cryopyrin associated periodic syndrome [Recovered/Resolved]
  - Cryopyrin associated periodic syndrome [Unknown]

NARRATIVE: CASE EVENT DATE: 20131115
